FAERS Safety Report 26073583 (Version 2)
Quarter: 2025Q4

REPORT INFORMATION
  Report Type: Spontaneous
  Country: CN (occurrence: CN)
  Receive Date: 20251121
  Receipt Date: 20251211
  Transmission Date: 20260118
  Serious: No
  Sender: CSL BEHRING
  Company Number: CN-CSL-11118

PATIENT
  Age: 51 Year
  Sex: Male
  Weight: 74 kg

DRUGS (1)
  1. ALBURX [Suspect]
     Active Substance: ALBUMIN HUMAN
     Indication: IgA nephropathy
     Dosage: 10 G, QD
     Route: 041
     Dates: start: 20251106, end: 20251106

REACTIONS (3)
  - Rash pruritic [Recovered/Resolved]
  - Blood pressure increased [Unknown]
  - Heart rate increased [Unknown]

NARRATIVE: CASE EVENT DATE: 20251106
